FAERS Safety Report 8117358-2 (Version None)
Quarter: 2012Q1

REPORT INFORMATION
  Report Type: 
  Country: None (occurrence: None)
  Receive Date: 20120206
  Receipt Date: 20120127
  Transmission Date: 20120608
  Serious: Yes (Other)
  Sender: FDA-Public Use
  Company Number: US-ASTRAZENECA-2011SE68683

PATIENT
  Age: 47 Year
  Sex: Female
  Weight: 36.7 kg

DRUGS (16)
  1. NEXIUM [Suspect]
     Indication: GASTRIC DISORDER
     Route: 048
  2. NEXIUM [Suspect]
     Indication: DIARRHOEA
     Route: 048
  3. AMLODIPINE [Concomitant]
     Indication: HYPERTENSION
     Dates: start: 20100101
  4. ASPIRIN [Concomitant]
     Dosage: LOW DOSE
  5. GABAPENTIN [Concomitant]
     Indication: CONVULSION
     Dosage: 300 MG AT AM AND 300 MG AT PM
     Dates: start: 20100101
  6. CLONAZEPAM [Concomitant]
  7. STOOL SOFTNER [Concomitant]
     Dosage: OTC
  8. MUCINEX [Concomitant]
     Dosage: 1-2 TEA SPOON DAILY
  9. TOPAMAX [Concomitant]
     Indication: CONVULSION
     Dates: start: 20100101
  10. NEXIUM [Suspect]
     Indication: MELAENA
     Route: 048
  11. PROTONIX [Concomitant]
  12. PATADAY EYE DROPS [Concomitant]
     Dosage: 0.2 %
  13. NEXIUM [Suspect]
     Indication: EATING DISORDER
     Route: 048
  14. SIMVASTATIN [Concomitant]
  15. VITAMIN 12 [Concomitant]
  16. VITAMIN E [Concomitant]
     Dosage: OTC

REACTIONS (12)
  - PAIN [None]
  - CONVULSION [None]
  - ABDOMINAL DISCOMFORT [None]
  - HAEMATOCHEZIA [None]
  - MELAENA [None]
  - ABDOMINAL PAIN [None]
  - NAUSEA [None]
  - CONDITION AGGRAVATED [None]
  - DRUG DOSE OMISSION [None]
  - GASTRIC HAEMORRHAGE [None]
  - EATING DISORDER [None]
  - DIARRHOEA [None]
